FAERS Safety Report 25481640 (Version 3)
Quarter: 2025Q3

REPORT INFORMATION
  Report Type: Spontaneous
  Country: EU (occurrence: EU)
  Receive Date: 20250626
  Receipt Date: 20250730
  Transmission Date: 20251020
  Serious: Yes (Other)
  Sender: AUROBINDO
  Company Number: EU-MEDIWOUND LTD.-IT-MW-25-00024

PATIENT
  Age: 67 Year
  Sex: Female
  Weight: 105 kg

DRUGS (11)
  1. BUPIVACAINE [Suspect]
     Active Substance: BUPIVACAINE
     Indication: Spinal anaesthesia
     Dosage: 12 MILLIGRAM, ONCE A DAY, 0.5%
     Route: 065
     Dates: start: 20250428
  2. CEFAZOLIN SODIUM [Suspect]
     Active Substance: CEFAZOLIN SODIUM
     Indication: Prophylaxis
     Dosage: 2 GRAM, ONCE A DAY, SINGLE
     Route: 042
     Dates: start: 20250428
  3. BROMELAINS [Suspect]
     Active Substance: BROMELAINS
     Indication: Thermal burn
     Dosage: 10 GRAM, ONCE A DAY, 5% SINGLE
     Route: 065
     Dates: start: 20250427, end: 20250427
  4. BROMELAINS [Suspect]
     Active Substance: BROMELAINS
     Dosage: 25 GRAM, ONCE A DAY (12.5 % SINGLE)
     Route: 065
     Dates: start: 20250428, end: 20250428
  5. ROPIVACAINE [Suspect]
     Active Substance: ROPIVACAINE
     Indication: Anaesthesia
     Dosage: 130 MILLIGRAM, ONCE A DAY,0.5%
     Route: 065
     Dates: start: 20250427
  6. LANSOPRAZOLE [Concomitant]
     Active Substance: LANSOPRAZOLE
     Indication: Product used for unknown indication
     Dosage: 30 MILLIGRAM, ONCE A DAY
     Route: 048
     Dates: start: 20250426
  7. ENOXAPARIN [Concomitant]
     Active Substance: ENOXAPARIN
     Indication: Product used for unknown indication
     Dosage: 6000 INTERNATIONAL UNIT, ONCE A DAY
     Route: 058
     Dates: start: 20250426
  8. ACETAMINOPHEN [Concomitant]
     Active Substance: ACETAMINOPHEN
     Indication: Product used for unknown indication
     Dosage: 1 GRAM, 3 TIMES A DAY
     Route: 042
     Dates: start: 20250426
  9. ALBUMIN HUMAN [Concomitant]
     Active Substance: ALBUMIN HUMAN
     Indication: Product used for unknown indication
     Dosage: 50 GRAM, ONCE A DAY (50 GRAM, BID)
     Route: 042
     Dates: start: 20250427
  10. LASIX [Concomitant]
     Active Substance: FUROSEMIDE
     Indication: Product used for unknown indication
     Dosage: 20 MILLIGRAM, ONCE A DAY PER CUBIC MILLILITER
     Route: 042
     Dates: start: 20250427
  11. ONDANSETRON [Concomitant]
     Active Substance: ONDANSETRON
     Indication: Product used for unknown indication
     Route: 065

REACTIONS (2)
  - Anaphylactic shock [Recovered/Resolved]
  - Off label use [Unknown]

NARRATIVE: CASE EVENT DATE: 20250428
